FAERS Safety Report 11232818 (Version 1)
Quarter: 2015Q3

REPORT INFORMATION
  Report Type: Spontaneous
  Country: BR (occurrence: BR)
  Receive Date: 20150701
  Receipt Date: 20150701
  Transmission Date: 20151125
  Serious: Yes (Other)
  Sender: FDA-Public Use
  Company Number: CHPA2015BR007796

PATIENT
  Sex: Male

DRUGS (1)
  1. BUFFERIN [Suspect]
     Active Substance: ASPIRIN
     Indication: PRODUCT USED FOR UNKNOWN INDICATION
     Dosage: UNK
     Route: 065

REACTIONS (3)
  - Facial bones fracture [Unknown]
  - Fall [Unknown]
  - Aneurysm [Unknown]

NARRATIVE: CASE EVENT DATE: 20150423
